FAERS Safety Report 23221674 (Version 1)
Quarter: 2023Q4

REPORT INFORMATION
  Report Type: Spontaneous
  Country: US (occurrence: US)
  Receive Date: 20231123
  Receipt Date: 20231123
  Transmission Date: 20240110
  Serious: No
  Sender: FDA-Public Use
  Company Number: US-ABBVIE-5505448

PATIENT

DRUGS (1)
  1. LATISSE [Suspect]
     Active Substance: BIMATOPROST
     Indication: Product used for unknown indication
     Route: 047
     Dates: start: 20230803

REACTIONS (2)
  - Product dispensing error [Unknown]
  - Eye pain [Not Recovered/Not Resolved]
